FAERS Safety Report 19800692 (Version 8)
Quarter: 2022Q1

REPORT INFORMATION
  Report Type: Report from Study
  Country: US (occurrence: US)
  Receive Date: 20210907
  Receipt Date: 20220121
  Transmission Date: 20220423
  Serious: Yes (Other)
  Sender: FDA-Public Use
  Company Number: US-MYOVANT SCIENCES GMBH-2021MYSCI0800275

PATIENT
  Age: 36 Year
  Sex: Female
  Weight: 87.982 kg

DRUGS (13)
  1. RELUGOLIX [Suspect]
     Active Substance: RELUGOLIX
     Indication: Endometriosis
     Dosage: 40 MILLIGRAM, QD
     Route: 048
     Dates: start: 20200130, end: 20210814
  2. ESTRADIOL\NORETHINDRONE ACETATE [Suspect]
     Active Substance: ESTRADIOL\NORETHINDRONE ACETATE
     Indication: Endometriosis
     Dosage: ESTRADIOL 1 MG /NORETHINDRONE ACETATE 0.5 MG, QD
     Route: 048
     Dates: start: 20200130, end: 20210814
  3. ALPRAZOLAM [Concomitant]
     Active Substance: ALPRAZOLAM
     Indication: Anxiety
     Dosage: 0.25 MILLIGRAM, PRN
     Route: 048
     Dates: start: 2015
  4. IBUPROFEN [Concomitant]
     Active Substance: IBUPROFEN
     Indication: Pelvic pain
     Dosage: 200 MILLIGRAM, PRN
     Route: 048
     Dates: start: 20190701
  5. IBUPROFEN [Concomitant]
     Active Substance: IBUPROFEN
     Indication: Arthralgia
     Dosage: 400 MILLIGRAM, PRN
     Route: 048
     Dates: start: 20201009
  6. TRAMADOL [Concomitant]
     Active Substance: TRAMADOL
     Indication: Pelvic pain
     Dosage: 50 MILLIGRAM, PRN
     Route: 048
     Dates: start: 20190701
  7. CALCIUM [Concomitant]
     Active Substance: CALCIUM
     Indication: Bone density decreased
     Dosage: 600 MILLIGRAM, BID
     Route: 048
     Dates: start: 20191231
  8. VITAMIN D3 [Concomitant]
     Active Substance: CHOLECALCIFEROL
     Indication: Bone density decreased
     Dosage: 400 INTERNATIONAL UNIT, BID
     Route: 048
     Dates: start: 20191231
  9. ZYRTEC [Concomitant]
     Active Substance: CETIRIZINE HYDROCHLORIDE
     Indication: Seasonal allergy
     Dosage: 10 MILLIGRAM, PRN
     Route: 048
     Dates: start: 20190918
  10. DOXYCYCLINE [Concomitant]
     Active Substance: DOXYCYCLINE
     Indication: Endometritis
     Dosage: 100 MILLIGRAM, Q12H
     Route: 048
     Dates: start: 20210607, end: 20210616
  11. ACETAMINOPHEN [Concomitant]
     Active Substance: ACETAMINOPHEN
     Indication: Pelvic pain
     Dosage: 650 MILLIGRAM, ONE TIME DOSE
     Route: 048
     Dates: start: 20210819, end: 20210819
  12. ONDANSETRON [Concomitant]
     Active Substance: ONDANSETRON
     Indication: Nausea
     Dosage: 4 MILLIGRAM, ONE TIME DOSE
     Route: 042
     Dates: start: 20210819, end: 20210819
  13. PHENTERMINE [Concomitant]
     Active Substance: PHENTERMINE
     Indication: Weight control
     Dosage: 4 MILLIGRAM, QD
     Route: 048
     Dates: start: 20210922

REACTIONS (3)
  - Abortion spontaneous [Recovered/Resolved]
  - Pregnancy [Recovered/Resolved]
  - Subchorionic haemorrhage [Recovered/Resolved]

NARRATIVE: CASE EVENT DATE: 20210804
